FAERS Safety Report 17511284 (Version 1)
Quarter: 2020Q1

REPORT INFORMATION
  Report Type: Report from Study
  Country: CA (occurrence: CA)
  Receive Date: 20200306
  Receipt Date: 20200306
  Transmission Date: 20200409
  Serious: Yes (Other)
  Sender: FDA-Public Use
  Company Number: CA-ANIPHARMA-2020-CA-000265

PATIENT
  Age: 58 Year
  Sex: Female

DRUGS (1)
  1. PROPRANOLOL EXTENDED RELEASE CAPSULES (NON-SPECIFIC) [Suspect]
     Active Substance: PROPRANOLOL HYDROCHLORIDE
     Indication: MIGRAINE
     Route: 065

REACTIONS (2)
  - Drug intolerance [Unknown]
  - Cerebrovascular accident [Unknown]
